FAERS Safety Report 8124168-9 (Version None)
Quarter: 2012Q1

REPORT INFORMATION
  Report Type: 
  Country: None (occurrence: None)
  Receive Date: 20120209
  Receipt Date: 20120201
  Transmission Date: 20120608
  Serious: Yes (Other)
  Sender: FDA-Public Use
  Company Number: BR-BAYER-2012-010430

PATIENT
  Age: 30 Year
  Sex: Female

DRUGS (4)
  1. LEVOTHYROXINE SODIUM [Concomitant]
     Indication: HYPOTHYROIDISM
     Dosage: 50 MG, QD
     Route: 048
     Dates: start: 20110101
  2. YASMIN [Suspect]
     Indication: ORAL CONTRACEPTION
     Dosage: UNK
     Route: 048
     Dates: start: 20111001, end: 20120105
  3. UNCODEABLE ^UNCLASSIFIABLE^ [Concomitant]
     Indication: HYPOTHYROIDISM
     Dosage: UNK
     Route: 048
  4. METFORMIN HYDROCHLORIDE [Concomitant]
     Indication: DIABETES MELLITUS MANAGEMENT
     Dosage: 1 DF, QD
     Route: 048
     Dates: start: 20111201

REACTIONS (4)
  - PREGNANCY ON ORAL CONTRACEPTIVE [None]
  - NO ADVERSE EVENT [None]
  - METRORRHAGIA [None]
  - HAEMORRHAGE IN PREGNANCY [None]
